FAERS Safety Report 4276323-6 (Version None)
Quarter: 2004Q1

REPORT INFORMATION
  Report Type: 
  Country: None (occurrence: None)
  Receive Date: 20040120
  Receipt Date: 20040120
  Transmission Date: 20041129
  Serious: Yes (Hospitalization)
  Sender: FDA-Public Use
  Company Number: None

PATIENT
  Age: 71 Year
  Sex: Male
  Weight: 118.3888 kg

DRUGS (22)
  1. LITHIUM CARBONATE [Suspect]
     Indication: BIPOLAR DISORDER
     Dosage: 300 MG TID
     Dates: start: 20030909, end: 20031002
  2. HYDROCHLOROTHIAZIDE [Suspect]
     Indication: HYPERTENSION
     Dosage: 12.5 MG QD
     Dates: start: 20030729, end: 20031003
  3. ACCU-CHEK COMFORT CV (GLUCOSE) TEST STRIP [Concomitant]
  4. ALBUTEROL [Concomitant]
  5. ALCOHOL PREP PAD [Concomitant]
  6. BUPROPION HCL [Concomitant]
  7. CALCIPOTRIENE [Concomitant]
  8. CHLORPHENIRAMINE MALEATE [Concomitant]
  9. DONEPEZIL HCL [Concomitant]
  10. ENALAPRIL MALEATE [Concomitant]
  11. FLUOCINONIDE [Concomitant]
  12. FLUOXETINE HCL [Concomitant]
  13. HYDROCHLOROTHIAZIDE [Concomitant]
  14. IBUPROFEN [Concomitant]
  15. HUMULIN N [Concomitant]
  16. INSULIN SYRINGE [Concomitant]
  17. LANCET, TECHLITE [Concomitant]
  18. MECLIZINE HCL [Concomitant]
  19. OXYBUTYNIN CHLORIDE [Concomitant]
  20. RISPERIDONE [Concomitant]
  21. SCOPOLAMINE [Concomitant]
  22. TERAZOSIN HCL [Concomitant]

REACTIONS (5)
  - DEHYDRATION [None]
  - LETHARGY [None]
  - NAUSEA [None]
  - RENAL DISORDER [None]
  - TREMOR [None]
